FAERS Safety Report 5067683-7 (Version None)
Quarter: 2006Q3

REPORT INFORMATION
  Report Type: 
  Country: None (occurrence: None)
  Receive Date: 20060802
  Receipt Date: 20060727
  Transmission Date: 20061208
  Serious: Yes (Hospitalization)
  Sender: FDA-Public Use
  Company Number: FR-AVENTIS-200612655FR

PATIENT
  Age: 80 Year
  Sex: Female

DRUGS (6)
  1. LASILIX [Suspect]
     Indication: DYSPNOEA
     Route: 042
     Dates: start: 20060628, end: 20060628
  2. LASILIX [Suspect]
     Route: 048
     Dates: start: 20060628, end: 20060630
  3. TAREG [Suspect]
     Indication: ESSENTIAL HYPERTENSION
     Route: 048
     Dates: start: 20060628, end: 20060630
  4. TRIATEC [Concomitant]
     Route: 048
  5. VASTAREL [Concomitant]
     Route: 048
  6. ISOBAR [Concomitant]
     Route: 048

REACTIONS (3)
  - DRUG INTERACTION [None]
  - RENAL FAILURE ACUTE [None]
  - RHABDOMYOLYSIS [None]
